FAERS Safety Report 8316807-4 (Version None)
Quarter: 2012Q2

REPORT INFORMATION
  Report Type: 
  Country: None (occurrence: None)
  Receive Date: 20120425
  Receipt Date: 20120418
  Transmission Date: 20120825
  Serious: Yes (Hospitalization)
  Sender: FDA-Public Use
  Company Number: 2012SP019333

PATIENT
  Age: 60 Year
  Sex: Female
  Weight: 82.5547 kg

DRUGS (14)
  1. METAPROLOL [Concomitant]
  2. TRAMADOL /00599202/ [Concomitant]
  3. BENADRYL [Concomitant]
  4. PEG-INTRON [Suspect]
     Indication: HEPATITIS C
     Dosage: 0.5 ML
     Dates: start: 20120326, end: 20120409
  5. PEG-INTRON [Suspect]
     Indication: HEPATITIS C
     Dosage: 0.5 ML
     Dates: start: 20111227, end: 20120319
  6. VICTRELIS [Suspect]
     Indication: HEPATITIS C
     Dosage: 800 MG;TID
     Dates: start: 20120320, end: 20120410
  7. VICTRELIS [Suspect]
     Indication: HEPATITIS C
     Dosage: 800 MG;TID
     Dates: start: 20120124, end: 20120319
  8. IBUPROFEN (ADVIL) [Concomitant]
  9. PROMETHAZINE HCL [Concomitant]
  10. CIPROFLOXACIN [Concomitant]
  11. RIBAVIRIN [Suspect]
     Indication: HEPATITIS C
     Dates: start: 20120319, end: 20120410
  12. RIBAVIRIN [Suspect]
     Indication: HEPATITIS C
     Dates: start: 20111227, end: 20120319
  13. PLACEBO [Suspect]
     Indication: HEPATITIS C
     Dosage: 1 DF
     Dates: start: 20111227, end: 20120320
  14. ATENOLOL [Concomitant]

REACTIONS (4)
  - ATRIAL FIBRILLATION [None]
  - DIVERTICULITIS [None]
  - DYSPNOEA [None]
  - PALPITATIONS [None]
